FAERS Safety Report 5312106-3 (Version None)
Quarter: 2007Q2

REPORT INFORMATION
  Report Type: 
  Country: None (occurrence: None)
  Receive Date: 20070430
  Receipt Date: 20060824
  Transmission Date: 20071010
  Serious: No
  Sender: FDA-Public Use
  Company Number: 2006UW16931

PATIENT
  Age: 55 Year
  Sex: Female
  Weight: 54 kg

DRUGS (2)
  1. NEXIUM [Suspect]
     Indication: EROSIVE OESOPHAGITIS
     Route: 048
     Dates: start: 20060301
  2. CARAFATE [Concomitant]

REACTIONS (9)
  - COUGH [None]
  - DRUG INEFFECTIVE [None]
  - DYSPHONIA [None]
  - MUSCULOSKELETAL CHEST PAIN [None]
  - NECK PAIN [None]
  - PHARYNGOLARYNGEAL PAIN [None]
  - RHINORRHOEA [None]
  - THROAT IRRITATION [None]
  - WEIGHT DECREASED [None]
